FAERS Safety Report 25666432 (Version 7)
Quarter: 2025Q4

REPORT INFORMATION
  Report Type: Report from Study
  Country: KR (occurrence: KR)
  Receive Date: 20250811
  Receipt Date: 20251029
  Transmission Date: 20260118
  Serious: Yes (Death, Hospitalization)
  Sender: NOVARTIS
  Company Number: KR-002147023-NVSC2025KR099935

PATIENT
  Age: 74 Year
  Sex: Male
  Weight: 59.8 kg

DRUGS (23)
  1. PLUVICTO [Suspect]
     Active Substance: LUTETIUM LU-177 VIPIVOTIDE TETRAXETAN
     Indication: Hormone-refractory prostate cancer
     Dosage: 7.4 GBQ (200MCI)
     Route: 042
     Dates: start: 20250520, end: 20250520
  2. METHYLPREDNISOLONE ACEPONATE [Concomitant]
     Active Substance: METHYLPREDNISOLONE ACEPONATE
     Indication: Prophylaxis
     Dosage: 1 MG, PRN (TOPICAL)
     Route: 050
     Dates: start: 20240920
  3. BARRIER CREAM [Concomitant]
     Active Substance: ZINC OXIDE
     Indication: Prophylaxis
     Dosage: 1 G, PRN (TOPICAL)
     Route: 050
     Dates: start: 20250219
  4. BARRIER CREAM [Concomitant]
     Active Substance: ZINC OXIDE
     Indication: Dry skin
  5. Bearoban [Concomitant]
     Indication: Prophylaxis
     Dosage: 1 MG, PRN (TOPICAL)
     Route: 050
     Dates: start: 20240920
  6. Bearoban [Concomitant]
     Indication: Dermatitis
  7. CALCIUM CARBONATE\CHOLECALCIFEROL [Concomitant]
     Active Substance: CALCIUM CARBONATE\CHOLECALCIFEROL
     Indication: Prophylaxis
     Dosage: 1 DOSAGE FORM, QD
     Route: 048
     Dates: start: 20241106
  8. ELIGARD [Concomitant]
     Active Substance: LEUPROLIDE ACETATE
     Indication: Hormone-refractory prostate cancer
     Dosage: 45 MG, PRN
     Route: 058
     Dates: start: 20250416
  9. LYRICA [Concomitant]
     Active Substance: PREGABALIN
     Indication: Peripheral sensory neuropathy
     Dosage: 150 MG, BID
     Route: 048
     Dates: start: 20241016
  10. LYRICA [Concomitant]
     Active Substance: PREGABALIN
     Indication: Prophylaxis
  11. Megace F [Concomitant]
     Indication: Prophylaxis
     Dosage: UNK, PRN (1 PACK)
     Route: 048
     Dates: start: 20230918
  12. Megace F [Concomitant]
     Indication: Decreased appetite
  13. Rovastar [Concomitant]
     Indication: Dyslipidaemia
     Dosage: 20 MG, QD
     Route: 048
     Dates: start: 20241101
  14. Tenelia M SR [Concomitant]
     Indication: Diabetes mellitus
     Dosage: 1 DOSAGE FORM, QD
     Route: 048
     Dates: start: 202301
  15. MIRABEGRON [Concomitant]
     Active Substance: MIRABEGRON
     Indication: Prophylaxis
     Dosage: 50 MG, QD
     Route: 048
     Dates: start: 20210216
  16. Ultracet er semi [Concomitant]
     Indication: Prophylaxis
     Dosage: 1 DOSAGE FORM, BID
     Route: 048
     Dates: start: 20250519, end: 202507
  17. Lacticare [Concomitant]
     Indication: Prophylaxis
     Dosage: 1 MG, PRN, TOPICAL, LOTION (1% 1.18G/118ML)
     Route: 065
     Dates: start: 20250219
  18. Zaratan [Concomitant]
     Indication: Hypertension
     Dosage: 20 MG, PRN
     Route: 048
     Dates: start: 201301
  19. GOSERELIN [Concomitant]
     Active Substance: GOSERELIN
     Indication: Hormone therapy
     Dosage: 10.8 MG, PRN
     Route: 058
     Dates: start: 20230828
  20. GOSERELIN [Concomitant]
     Active Substance: GOSERELIN
     Indication: Prophylaxis
  21. NALOXONE HYDROCHLORIDE\OXYCODONE HYDROCHLORIDE [Concomitant]
     Active Substance: NALOXONE HYDROCHLORIDE\OXYCODONE HYDROCHLORIDE
     Indication: Pain
     Dosage: 1 DOSAGE FORM, BID
     Route: 048
     Dates: start: 20250630
  22. NALOXONE HYDROCHLORIDE\OXYCODONE HYDROCHLORIDE [Concomitant]
     Active Substance: NALOXONE HYDROCHLORIDE\OXYCODONE HYDROCHLORIDE
     Indication: Prophylaxis
  23. BANAN [Concomitant]
     Active Substance: CEFPODOXIME PROXETIL
     Indication: Prophylaxis
     Dosage: 100 MG, BID
     Route: 048
     Dates: start: 20250703

REACTIONS (10)
  - Hormone-refractory prostate cancer [Fatal]
  - Malignant neoplasm progression [Fatal]
  - Metastases to liver [Fatal]
  - Abdominal pain [Fatal]
  - Metastases to bone [Fatal]
  - Thrombocytopenia [Not Recovered/Not Resolved]
  - Dry mouth [Recovered/Resolved]
  - Nausea [Recovered/Resolved]
  - Dizziness [Recovered/Resolved]
  - Drug ineffective [Unknown]

NARRATIVE: CASE EVENT DATE: 20250520
